FAERS Safety Report 24988010 (Version 1)
Quarter: 2025Q1

REPORT INFORMATION
  Report Type: Spontaneous
  Country: US (occurrence: US)
  Receive Date: 20250220
  Receipt Date: 20250220
  Transmission Date: 20250408
  Serious: Yes (Hospitalization, Other)
  Sender: NOVO NORDISK
  Company Number: US-NOVOPROD-1369669

PATIENT
  Age: 93 Year
  Sex: Female
  Weight: 72.2 kg

DRUGS (16)
  1. LEVEMIR [Suspect]
     Active Substance: INSULIN DETEMIR
     Indication: Type 2 diabetes mellitus
     Dosage: 42 U, QD AT BEDTIME
     Route: 058
  2. LEVEMIR [Suspect]
     Active Substance: INSULIN DETEMIR
     Dosage: 10 U (AM) + 5 U (PM)
     Route: 058
     Dates: start: 20230705
  3. LEVEMIR [Suspect]
     Active Substance: INSULIN DETEMIR
     Dosage: 12 U (AM) + 5 U (PM)
     Route: 058
     Dates: start: 20231025
  4. LEVEMIR [Suspect]
     Active Substance: INSULIN DETEMIR
     Dosage: 12 U (AM) + 5 U (PM)
     Route: 058
     Dates: start: 20231016
  5. LEVEMIR [Suspect]
     Active Substance: INSULIN DETEMIR
     Dosage: 12 U (AM) + 6 U (PM)
     Route: 058
     Dates: start: 20230905
  6. LEVEMIR [Suspect]
     Active Substance: INSULIN DETEMIR
     Dosage: 12 U (AM) + 6 U (PM)
     Route: 058
     Dates: start: 20230807
  7. LEVEMIR [Suspect]
     Active Substance: INSULIN DETEMIR
     Dosage: 35 U, QD (PM)
     Route: 058
     Dates: start: 20230616
  8. LEVEMIR [Suspect]
     Active Substance: INSULIN DETEMIR
     Dosage: 30 U, BID (AM +PM)
     Route: 058
     Dates: start: 20230621
  9. LEVEMIR [Suspect]
     Active Substance: INSULIN DETEMIR
     Dosage: 12 U (AM) + 5 U (PM)
     Route: 058
     Dates: start: 20240117
  10. LEVEMIR [Suspect]
     Active Substance: INSULIN DETEMIR
     Dosage: 11 U (AM) + 6 U (PM)
     Route: 058
     Dates: start: 20230801
  11. LEVEMIR [Suspect]
     Active Substance: INSULIN DETEMIR
     Dosage: 11 U (AM) + 6 U (PM)
     Route: 058
     Dates: start: 20230712
  12. INSULIN ASPART [Suspect]
     Active Substance: INSULIN ASPART
     Dosage: 15 U, TID
     Route: 058
  13. INSULIN ASPART [Suspect]
     Active Substance: INSULIN ASPART
     Dosage: 10 U, TID (BEFORE MEALS)
     Route: 058
     Dates: start: 20230616
  14. INSULIN ASPART [Suspect]
     Active Substance: INSULIN ASPART
     Indication: Type 2 diabetes mellitus
     Dosage: 13 U, TID (BEFOR E MEALS)
     Route: 058
  15. METFORMIN [Concomitant]
     Active Substance: METFORMIN HYDROCHLORIDE
     Indication: Type 2 diabetes mellitus
     Dosage: 500 MG, QD
     Route: 048
     Dates: start: 20230616
  16. EMPAGLIFLOZIN [Concomitant]
     Active Substance: EMPAGLIFLOZIN
     Indication: Type 2 diabetes mellitus
     Dosage: 10 MG, QD
     Route: 048
     Dates: start: 20230705

REACTIONS (3)
  - Hyperglycaemic hyperosmolar nonketotic syndrome [Recovered/Resolved]
  - Hypoglycaemia [Recovered/Resolved]
  - Wrong technique in product usage process [Unknown]

NARRATIVE: CASE EVENT DATE: 20230101
